FAERS Safety Report 16435808 (Version 1)
Quarter: 2019Q2

REPORT INFORMATION
  Report Type: Spontaneous
  Country: IE (occurrence: IE)
  Receive Date: 20190614
  Receipt Date: 20190614
  Transmission Date: 20190711
  Serious: Yes (Other)
  Sender: FDA-Public Use
  Company Number: IE-PFIZER INC-2019248702

PATIENT
  Age: 65 Year
  Sex: Male

DRUGS (9)
  1. FUROSEMIDE. [Suspect]
     Active Substance: FUROSEMIDE
     Dosage: 40 MG, 1X/DAY
  2. AMIODARONE [Suspect]
     Active Substance: AMIODARONE
     Dosage: 200 MG, 1X/DAY
  3. NEOCLARITYN [Suspect]
     Active Substance: DESLORATADINE
     Dosage: 5 MG, 1X/DAY
  4. BISOPROLOL [Suspect]
     Active Substance: BISOPROLOL
     Dosage: 10 MG, 1X/DAY (5 MG, TWICE A DAY)
  5. ENTRESTO [Suspect]
     Active Substance: SACUBITRIL\VALSARTAN
     Indication: CARDIAC FAILURE CHRONIC
     Dosage: 100 MG, 1X/DAY (50 MG (24/26), BID)
  6. EPLERENONE. [Suspect]
     Active Substance: EPLERENONE
     Dosage: 12.5 MG, 1X/DAY
  7. RIVAROXABAN [Suspect]
     Active Substance: RIVAROXABAN
     Dosage: 20 MG, 1X/DAY
  8. FUROSEMIDE. [Suspect]
     Active Substance: FUROSEMIDE
     Dosage: 80 MG, 1X/DAY (40 MG, 2X DAY)
  9. RAMIPRIL. [Suspect]
     Active Substance: RAMIPRIL
     Dosage: 2.5 MG, 1X/DAY

REACTIONS (17)
  - Blood cholesterol increased [Unknown]
  - Hypotension [Unknown]
  - Rales [Unknown]
  - Electrocardiogram abnormal [Unknown]
  - Abdominal distension [Unknown]
  - Joint swelling [Unknown]
  - Dilatation atrial [Unknown]
  - Blood thyroid stimulating hormone increased [Unknown]
  - Oedema peripheral [Unknown]
  - Left ventricular dysfunction [Unknown]
  - Dyspnoea [Unknown]
  - Atrial flutter [Unknown]
  - Heart rate irregular [Unknown]
  - Polyuria [Unknown]
  - Blood potassium increased [Unknown]
  - Thrombosis [Unknown]
  - Atrial fibrillation [Unknown]
